FAERS Safety Report 20307560 (Version 2)
Quarter: 2022Q1

REPORT INFORMATION
  Report Type: Report from Study
  Country: US (occurrence: US)
  Receive Date: 20220107
  Receipt Date: 20220114
  Transmission Date: 20220423
  Serious: Yes (Hospitalization)
  Sender: FDA-Public Use
  Company Number: US-009507513-2201USA000829

PATIENT
  Age: 84 Year
  Sex: Female

DRUGS (7)
  1. JANUVIA [Suspect]
     Active Substance: SITAGLIPTIN PHOSPHATE
     Indication: Type 2 diabetes mellitus
     Dosage: STARTED 4 OR 5 YEARS AGO, QD
     Route: 048
     Dates: start: 2017
  2. POTASSIUM [Suspect]
     Active Substance: POTASSIUM
     Dosage: 20 MILLIGRAM, ONCE
     Route: 048
  3. FUROSEMIDE [Suspect]
     Active Substance: FUROSEMIDE
     Dosage: 40 MILLIGRAM, ONCE
     Route: 048
  4. VITAMIN A [Concomitant]
     Active Substance: VITAMIN A
  5. VITAMIN C [Concomitant]
     Active Substance: ASCORBIC ACID
  6. FISH OIL [Concomitant]
     Active Substance: FISH OIL
  7. IRON [Concomitant]
     Active Substance: IRON

REACTIONS (5)
  - Asthenia [Recovering/Resolving]
  - Incoherent [Recovering/Resolving]
  - Blood potassium decreased [Recovering/Resolving]
  - Renal disorder [Recovering/Resolving]
  - Product dose omission issue [Unknown]

NARRATIVE: CASE EVENT DATE: 20211228
